FAERS Safety Report 7097205-0 (Version None)
Quarter: 2010Q4

REPORT INFORMATION
  Report Type: 
  Country: None (occurrence: None)
  Receive Date: 20101111
  Receipt Date: 20091222
  Transmission Date: 20110411
  Serious: No
  Sender: FDA-Public Use
  Company Number: US-KINGPHARMUSA00001-K200901626

PATIENT
  Sex: Male

DRUGS (2)
  1. AVINZA [Suspect]
     Indication: MULTIPLE FRACTURES
     Dosage: 120 MG, BID
  2. AVINZA [Suspect]
     Indication: ARTHRITIS

REACTIONS (2)
  - DRUG DIVERSION [None]
  - DRUG EFFECT DECREASED [None]
